FAERS Safety Report 11364125 (Version 1)
Quarter: 2015Q3

REPORT INFORMATION
  Report Type: Spontaneous
  Country: GB (occurrence: GB)
  Receive Date: 20150811
  Receipt Date: 20150811
  Transmission Date: 20151125
  Serious: Yes (Other)
  Sender: FDA-Public Use
  Company Number: GB-ACTAVISPR-2015-16707

PATIENT
  Sex: Male

DRUGS (1)
  1. ANTABUSE [Suspect]
     Active Substance: DISULFIRAM
     Indication: ALCOHOLISM
     Dosage: UNK UNK, UNKNOWN
     Route: 048
     Dates: start: 2012, end: 201503

REACTIONS (1)
  - Cerebral haemorrhage [Unknown]
